FAERS Safety Report 24815367 (Version 1)
Quarter: 2025Q1

REPORT INFORMATION
  Report Type: Spontaneous
  Country: US (occurrence: US)
  Receive Date: 20250107
  Receipt Date: 20250107
  Transmission Date: 20250408
  Serious: Yes (Hospitalization)
  Sender: DR REDDYS
  Company Number: US-DRL-USA-USA/2025/01/000168

PATIENT
  Age: 71 Year
  Sex: Female

DRUGS (2)
  1. PHENYLEPHRINE [Suspect]
     Active Substance: PHENYLEPHRINE
     Indication: Hypotension
  2. EPHEDRINE [Suspect]
     Active Substance: EPHEDRINE
     Indication: Hypotension

REACTIONS (1)
  - Drug ineffective [Unknown]
